FAERS Safety Report 5506400-0 (Version None)
Quarter: 2007Q4

REPORT INFORMATION
  Report Type: 
  Country: None (occurrence: None)
  Receive Date: 20071101
  Receipt Date: 20071101
  Transmission Date: 20080405
  Serious: Yes (Hospitalization, Disabling)
  Sender: FDA-Public Use
  Company Number: None

PATIENT
  Age: 71 Year
  Sex: Female

DRUGS (1)
  1. LOVENOX [Suspect]
     Indication: DEEP VEIN THROMBOSIS
     Dosage: 80 MG BID  SQ
     Route: 058
     Dates: start: 20070913, end: 20070920

REACTIONS (2)
  - RETROPERITONEAL HAEMATOMA [None]
  - RETROPERITONEAL HAEMORRHAGE [None]
